APPROVED DRUG PRODUCT: MYCHEL-S
Active Ingredient: CHLORAMPHENICOL SODIUM SUCCINATE
Strength: EQ 1GM BASE/VIAL
Dosage Form/Route: INJECTABLE;INJECTION
Application: A060132 | Product #001
Applicant: ANGUS CHEMICAL CO
Approved: Approved Prior to Jan 1, 1982 | RLD: No | RS: No | Type: DISCN